FAERS Safety Report 12479775 (Version 1)
Quarter: 2016Q2

REPORT INFORMATION
  Report Type: Spontaneous
  Country: US (occurrence: US)
  Receive Date: 20160620
  Receipt Date: 20160620
  Transmission Date: 20160815
  Serious: No
  Sender: FDA-Public Use
  Company Number: US-PFIZER INC-2016285072

PATIENT
  Age: 74 Year
  Sex: Female

DRUGS (4)
  1. PREGABALIN. [Suspect]
     Active Substance: PREGABALIN
     Dosage: 0.5 MG, UNK (FOR 4 DAYS)
     Dates: start: 20160323, end: 20160506
  2. PREGABALIN. [Suspect]
     Active Substance: PREGABALIN
     Dosage: 2 MG, UNK (4 DAYS)
     Dates: start: 20160323, end: 20160406
  3. PREGABALIN. [Suspect]
     Active Substance: PREGABALIN
     Dosage: 3 MG, UNK (FOR 4 DAYS)
     Dates: start: 20160323, end: 20160406
  4. PREGABALIN. [Suspect]
     Active Substance: PREGABALIN
     Dosage: 1 MG, UNK (4 DAYS)
     Dates: start: 20160323, end: 20160406

REACTIONS (1)
  - Feeling abnormal [Unknown]
